FAERS Safety Report 8257407 (Version 6)
Quarter: 2013Q1

REPORT INFORMATION
  Report Type: Spontaneous
  Country: US (occurrence: US)
  Receive Date: 20111121
  Receipt Date: 20130214
  Transmission Date: 20140127
  Serious: Yes (Hospitalization, Other)
  Sender: FDA-Public Use
  Company Number: US-BAYER-2011-109994

PATIENT
  Age: 31 Year
  Sex: Female
  Weight: 117.91 kg

DRUGS (38)
  1. OCELLA [Suspect]
     Indication: ACNE
     Dosage: UNK
     Route: 048
     Dates: start: 20090731, end: 200911
  2. OCELLA [Suspect]
     Indication: PREMENSTRUAL SYNDROME
  3. OCELLA [Suspect]
     Indication: PREMENSTRUAL DYSPHORIC DISORDER
  4. YAZ [Suspect]
     Indication: ACNE
     Dosage: UNK
     Dates: start: 20090731, end: 200911
  5. YAZ [Suspect]
     Indication: PREMENSTRUAL SYNDROME
  6. YAZ [Suspect]
     Indication: PREMENSTRUAL DYSPHORIC DISORDER
  7. KEFLEX [Concomitant]
     Dosage: 500 MG, BID
     Dates: start: 20090724
  8. LORTAB [Concomitant]
     Dosage: 5/500 TABLET, Q6WK
     Dates: start: 20090724
  9. TYLENOL [Concomitant]
     Indication: HEADACHE
     Dosage: 2 TABLET
  10. ALBUTEROL [Concomitant]
     Indication: ASTHMA
     Dosage: UNK
     Dates: start: 20090727
  11. DOXYCYCLINE [Concomitant]
     Dosage: 100 MG, BID
     Dates: start: 20090727
  12. CHANTIX [Concomitant]
     Dosage: 0.5 MG DAILY
     Route: 048
     Dates: start: 20090727
  13. CHANTIX [Concomitant]
     Dosage: 0.5 MG, DAILY
     Route: 048
     Dates: start: 20090922
  14. PRENATAL VITAMINS [Concomitant]
  15. BYSTOLIC [Concomitant]
     Dosage: 10 MG, QD
     Dates: start: 20090727
  16. REGLAN [Concomitant]
     Indication: NAUSEA
     Dosage: 10 MG, 1 TABLET, Q6WK PRN
     Dates: start: 20090727
  17. XALATAN [Concomitant]
     Dosage: UNK
     Dates: start: 20090727
  18. PRENATAL VITAMINS [Concomitant]
     Dosage: UNK
     Dates: start: 20090727
  19. LEVAQUIN [Concomitant]
     Dosage: 750 MG, UNK
     Dates: start: 20090831
  20. LEVAQUIN [Concomitant]
     Dosage: 750 MG, UNK
     Dates: start: 20090924
  21. TRANDOLAPRIL [Concomitant]
     Dosage: 2 MG, UNK
     Dates: start: 20091013
  22. TRANDOLAPRIL [Concomitant]
     Dosage: 2 MG, UNK
     Dates: start: 20091114
  23. PROMETHAZINE HYDROCHLORIDE [Concomitant]
     Dosage: 25 MG, EVERY 4 TO 6 HRS PRN
     Route: 054
  24. ATENOLOL [Concomitant]
     Dosage: 50 MG, DAILY
     Dates: start: 20091017
  25. COMPAZINE [Concomitant]
     Dosage: UNK
     Dates: start: 20091017
  26. ESOMEPRAZOLE [Concomitant]
     Dosage: 40 MG, QD
     Route: 048
     Dates: start: 20091122
  27. COLACE [Concomitant]
     Dosage: 1 TABLET DAILY
     Dates: start: 20091126
  28. MORPHINE ER [Concomitant]
     Dosage: 120 MG, BID
     Dates: start: 20091126
  29. PERCOCET [Concomitant]
     Dosage: 5/325, PRN
     Dates: start: 20091126
  30. METHYLPREDNISOLON [Concomitant]
  31. PROAIR HFA [Concomitant]
     Dosage: 90 MCG
  32. METOCLOPRAMIDE [Concomitant]
     Dosage: 10 MG
  33. MAVIK [Concomitant]
     Dosage: 2 MG DAILY
  34. NORCO [Concomitant]
     Indication: PAIN
     Dosage: 5/325 1 -2 Q 4 HOURS PRN
  35. ZOFRAN [Concomitant]
     Dosage: 4 MG, UNK
     Route: 048
  36. HYDROCODONE [Concomitant]
  37. PROZAC [Concomitant]
  38. FLUCONAZOLE [Concomitant]
     Dosage: 150 MG, UNK
     Dates: start: 20090202

REACTIONS (20)
  - Thrombotic stroke [None]
  - Transverse sinus thrombosis [None]
  - Pulmonary embolism [Recovered/Resolved]
  - Deep vein thrombosis [None]
  - Cholecystitis chronic [None]
  - Cholelithiasis [None]
  - Injury [None]
  - Pain [None]
  - General physical health deterioration [None]
  - Anxiety [None]
  - Emotional distress [None]
  - Asthenia [None]
  - Anhedonia [None]
  - Haemoptysis [Recovered/Resolved]
  - Chest pain [Recovered/Resolved]
  - Pain in extremity [None]
  - Stress [None]
  - Fear of death [None]
  - Fear of pregnancy [None]
  - Nightmare [None]
